FAERS Safety Report 25106528 (Version 1)
Quarter: 2025Q1

REPORT INFORMATION
  Report Type: Spontaneous
  Country: US (occurrence: None)
  Receive Date: 20250321
  Receipt Date: 20250321
  Transmission Date: 20250409
  Serious: Yes (Hospitalization, Disabling, Other)
  Sender: FDA-CTU
  Company Number: None

PATIENT
  Age: 16 Year
  Sex: Male
  Weight: 67.5 kg

DRUGS (1)
  1. OGSIVEO [Suspect]
     Active Substance: NIROGACESTAT HYDROBROMIDE
     Indication: Desmoid tumour

REACTIONS (5)
  - Off label use [None]
  - Osteopenia [None]
  - Epiphyseal fracture [None]
  - Ankle fracture [None]
  - Scoliosis [None]

NARRATIVE: CASE EVENT DATE: 20250312
